FAERS Safety Report 24002388 (Version 1)
Quarter: 2024Q2

REPORT INFORMATION
  Report Type: Other
  Country: SA (occurrence: None)
  Receive Date: 20240623
  Receipt Date: 20240623
  Transmission Date: 20240716
  Serious: Yes (Hospitalization)
  Sender: FDA-Public Use
  Company Number: SA-Square Pharmaceuticals PLC-000028

PATIENT
  Age: 1 Month
  Sex: Female
  Weight: 3 kg

DRUGS (1)
  1. CALCIUM GLUCONATE [Suspect]
     Active Substance: CALCIUM GLUCONATE
     Dosage: 10 % AT A DOSE OF 600 MG/KG EACH ?INFUSION ADMINISTERED OVER A 15-MIN PERIOD

REACTIONS (3)
  - Erythema [Recovered/Resolved]
  - Injection site swelling [Recovered/Resolved]
  - Cutaneous calcification [Recovered/Resolved]
